FAERS Safety Report 5316991-0 (Version None)
Quarter: 2007Q2

REPORT INFORMATION
  Report Type: 
  Country: None (occurrence: None)
  Receive Date: 20070504
  Receipt Date: 20070502
  Transmission Date: 20071010
  Serious: Yes (Other)
  Sender: FDA-Public Use
  Company Number: US-GLAXOSMITHKLINE-A0649385A

PATIENT
  Sex: Female

DRUGS (1)
  1. CITRUCEL CAPLETS [Suspect]

REACTIONS (1)
  - MUSCLE SPASMS [None]
